FAERS Safety Report 7115420-4 (Version None)
Quarter: 2010Q4

REPORT INFORMATION
  Report Type: 
  Country: None (occurrence: None)
  Receive Date: 20101122
  Receipt Date: 20101112
  Transmission Date: 20110411
  Serious: Yes (Other)
  Sender: FDA-Public Use
  Company Number: US-JNJFOC-20100704629

PATIENT
  Sex: Female

DRUGS (13)
  1. LEVAQUIN [Suspect]
     Indication: BRONCHITIS
     Route: 048
  2. LEVAQUIN [Suspect]
     Indication: LUNG INFECTION
     Route: 048
  3. LEVAQUIN [Suspect]
     Indication: SINUS DISORDER
     Route: 048
  4. LEVAQUIN [Suspect]
     Indication: ASTHMA
     Route: 048
  5. PREDNISONE [Suspect]
     Indication: ASTHMA
     Route: 065
  6. ACTOS [Concomitant]
     Indication: DIABETES MELLITUS
  7. HYDROCHLOROTHIAZIDE [Concomitant]
     Indication: HYPERTENSION
  8. KLONOPIN [Concomitant]
     Indication: BIPOLAR DISORDER
  9. SINGULAIR [Concomitant]
     Indication: ASTHMA
  10. LEVEMIR [Concomitant]
     Indication: DIABETES MELLITUS
  11. METFORMIN HCL [Concomitant]
     Indication: DIABETES MELLITUS
  12. DIOVAN HCT [Concomitant]
     Indication: HYPERTENSION
  13. COMBIVENT [Concomitant]
     Indication: ASTHMA

REACTIONS (6)
  - BURSITIS [None]
  - CUBITAL TUNNEL SYNDROME [None]
  - EPICONDYLITIS [None]
  - PARAESTHESIA [None]
  - ROTATOR CUFF SYNDROME [None]
  - TENDONITIS [None]
